FAERS Safety Report 22332433 (Version 1)
Quarter: 2023Q2

REPORT INFORMATION
  Report Type: Report from Study
  Country: US (occurrence: None)
  Receive Date: 20230517
  Receipt Date: 20230517
  Transmission Date: 20230721
  Serious: Yes (Other)
  Sender: FDA-Public Use
  Company Number: US-ROCHE-3349559

PATIENT

DRUGS (15)
  1. RITUXIMAB [Suspect]
     Active Substance: RITUXIMAB
     Indication: Burkitt^s lymphoma
     Dosage: 26/DEC/2014, 02/FEB/2015, 06/FEB/2015, 27/FEB/2015, 23/FEB/2015, 16/MAR/2015
     Route: 065
     Dates: start: 20141222
  2. RITUXIMAB [Suspect]
     Active Substance: RITUXIMAB
     Route: 065
     Dates: start: 20150223
  3. RITUXIMAB [Suspect]
     Active Substance: RITUXIMAB
     Dosage: 16/JAN/2015, 06/APR/2015
     Route: 065
     Dates: start: 20150112
  4. DOXORUBICIN [Suspect]
     Active Substance: DOXORUBICIN
     Indication: Burkitt^s lymphoma
     Dosage: 12/JAN/2015, 06/APR/2015
     Route: 065
     Dates: start: 20141222
  5. DOXORUBICIN [Suspect]
     Active Substance: DOXORUBICIN
     Dosage: 23/FEB/2015, 16/MAR/2015,
     Route: 065
     Dates: start: 20150202
  6. ETOPOSIDE [Suspect]
     Active Substance: ETOPOSIDE
     Indication: Burkitt^s lymphoma
     Dosage: 12/JAN/2015, 06/APR/2015
     Route: 065
     Dates: start: 20141222
  7. ETOPOSIDE [Suspect]
     Active Substance: ETOPOSIDE
     Dosage: 23/FEB/2015, 16/MAR/2015
     Route: 065
     Dates: start: 20150202
  8. VINCRISTINE [Suspect]
     Active Substance: VINCRISTINE
     Indication: Burkitt^s lymphoma
     Route: 065
     Dates: start: 20141222
  9. VINCRISTINE [Suspect]
     Active Substance: VINCRISTINE
     Route: 065
     Dates: start: 20150112
  10. VINCRISTINE [Suspect]
     Active Substance: VINCRISTINE
     Dosage: 23/FEB/2015, 16/MAR/2015, 06/APR/2015
     Route: 065
     Dates: start: 20150202
  11. CYCLOPHOSPHAMIDE [Suspect]
     Active Substance: CYCLOPHOSPHAMIDE
     Indication: Burkitt^s lymphoma
     Dosage: 06/FEB/2015. 27/FEB/2015, 20/MAR/2015
     Route: 065
     Dates: start: 20141226
  12. CYCLOPHOSPHAMIDE [Suspect]
     Active Substance: CYCLOPHOSPHAMIDE
     Dosage: 10/APR/2015
     Route: 065
     Dates: start: 20150116
  13. PREDNISONE [Suspect]
     Active Substance: PREDNISONE
     Indication: Burkitt^s lymphoma
     Dosage: 12/JAN/2015, 02/FEB/2015, 23/FEB/2015, 16/MAR/2015, 06/APR/2015
     Route: 065
     Dates: start: 20141222
  14. FILGRASTIM [Suspect]
     Active Substance: FILGRASTIM
     Indication: Burkitt^s lymphoma
     Dosage: 17/JAN/2015, 07/FEB/2015, 28/FEB/2015, 21/MAR/2015, 11/APR/2015
     Route: 065
     Dates: start: 20141227
  15. METHOTREXATE [Suspect]
     Active Substance: METHOTREXATE
     Indication: Burkitt^s lymphoma
     Dosage: 06/FEB/2015, 27/FEB/2015, 24/FEB/2015, 16/MAR/2015, 19/MAR/2015, 10/APR/2015, 07/APR/2015
     Route: 065
     Dates: start: 20150203

REACTIONS (5)
  - Platelet count decreased [Recovered/Resolved]
  - White blood cell count decreased [Recovered/Resolved]
  - Anaemia [Recovered/Resolved]
  - Anaemia [Recovered/Resolved]
  - Lymphocyte count decreased [Recovered/Resolved]

NARRATIVE: CASE EVENT DATE: 20150102
